FAERS Safety Report 13796513 (Version 1)
Quarter: 2017Q3

REPORT INFORMATION
  Report Type: Report from Study
  Country: US (occurrence: US)
  Receive Date: 20170726
  Receipt Date: 20170726
  Transmission Date: 20171127
  Serious: No
  Sender: FDA-Public Use
  Company Number: US-AMGEN-USASL2017054943

PATIENT
  Age: 68 Year
  Sex: Female

DRUGS (4)
  1. POMALYST [Suspect]
     Active Substance: POMALIDOMIDE
     Indication: PLASMA CELL MYELOMA
     Dosage: 3 MG, UNK
     Route: 065
  2. KYPROLIS [Suspect]
     Active Substance: CARFILZOMIB
     Indication: PLASMA CELL MYELOMA
     Dosage: UNK (2 DAYS WEEKLY EVERY OTHER WEEK)
     Route: 065
  3. CYTOXAN [Concomitant]
     Active Substance: CYCLOPHOSPHAMIDE
     Indication: PLASMA CELL MYELOMA
     Dosage: UNK, QWK (MONDAYS ONLY)
  4. POMALYST [Suspect]
     Active Substance: POMALIDOMIDE
     Dosage: 1 MG, UNK (FOR 21 DAYS WITH A 1 WEEK BREAK)
     Route: 048

REACTIONS (3)
  - Rash [Unknown]
  - Nausea [Unknown]
  - Off label use [Unknown]
